FAERS Safety Report 8176251-X (Version None)
Quarter: 2012Q1

REPORT INFORMATION
  Report Type: 
  Country: None (occurrence: None)
  Receive Date: 20120301
  Receipt Date: 20120221
  Transmission Date: 20120608
  Serious: No
  Sender: FDA-Public Use
  Company Number: US-B.I. PHARMACEUTICALS,INC./RIDGEFIELD-2011-BP-18963BP

PATIENT
  Sex: Female

DRUGS (8)
  1. POTASSIUM CHLORIDE [Concomitant]
     Indication: ELECTROLYTE SUBSTITUTION THERAPY
     Route: 048
     Dates: start: 20111201
  2. PREDNISONE (TAPER DOSE) [Concomitant]
     Indication: EMPHYSEMA
     Route: 048
  3. FUROSEMIDE [Concomitant]
     Indication: FLUID RETENTION
     Route: 048
     Dates: start: 20111201
  4. SPIRIVA [Concomitant]
     Indication: EMPHYSEMA
     Dosage: 18 MCG
     Route: 055
     Dates: start: 20070101
  5. REVATIO [Concomitant]
     Indication: EMPHYSEMA
     Dosage: 60 MG
     Route: 048
     Dates: start: 20120201
  6. OXYGEN [Concomitant]
     Indication: EMPHYSEMA
     Route: 045
  7. COMBIVENT [Suspect]
     Indication: EMPHYSEMA
     Dosage: 16 PUF
     Route: 055
     Dates: start: 20020101
  8. ADVAIR DISKUS 100/50 [Concomitant]
     Indication: EMPHYSEMA
     Dosage: 2 PUF
     Route: 055
     Dates: start: 20100101

REACTIONS (1)
  - DRUG INEFFECTIVE [None]
